FAERS Safety Report 5907504-0 (Version None)
Quarter: 2008Q4

REPORT INFORMATION
  Report Type: 
  Country: None (occurrence: None)
  Receive Date: 20081003
  Receipt Date: 20080926
  Transmission Date: 20090506
  Serious: Yes (Life-Threatening)
  Sender: FDA-Public Use
  Company Number: GB-ABBOTT-08P-167-0478698-00

PATIENT
  Age: 70 Year
  Sex: Male
  Weight: 81 kg

DRUGS (8)
  1. HUMIRA [Suspect]
     Indication: RHEUMATOID ARTHRITIS
     Dates: start: 20061024, end: 20070305
  2. MEBEVERINE [Concomitant]
     Indication: DRUG USE FOR UNKNOWN INDICATION
     Dates: start: 20070301
  3. LANSOPRAZOLE [Concomitant]
     Indication: DRUG USE FOR UNKNOWN INDICATION
     Dates: start: 20000101
  4. SODIUM AUROTHIOMALATE [Concomitant]
     Indication: RHEUMATOID ARTHRITIS
     Dates: start: 19950101, end: 20070101
  5. METHOTREXATE [Concomitant]
     Indication: RHEUMATOID ARTHRITIS
     Dates: start: 20000101, end: 20070101
  6. FOLIC ACID [Concomitant]
     Indication: RHEUMATOID ARTHRITIS
     Dates: start: 20000101, end: 20070101
  7. LEKOVIT CA [Concomitant]
     Indication: OSTEOPOROSIS
     Dates: start: 20040101
  8. PREDNISOLONE [Concomitant]
     Indication: RHEUMATOID ARTHRITIS
     Dates: start: 19950101

REACTIONS (3)
  - DIFFUSE LARGE B-CELL LYMPHOMA [None]
  - HEPATOSPLENIC T-CELL LYMPHOMA [None]
  - LIVER FUNCTION TEST ABNORMAL [None]
